FAERS Safety Report 4276424-2 (Version None)
Quarter: 2004Q1

REPORT INFORMATION
  Report Type: 
  Country: None (occurrence: None)
  Receive Date: 20040121
  Receipt Date: 20040121
  Transmission Date: 20041129
  Serious: Yes (Other)
  Sender: FDA-Public Use
  Company Number: None

PATIENT
  Sex: Female
  Weight: 22.6799 kg

DRUGS (1)
  1. LARONIDASE [Suspect]
     Indication: MUCOPOLYSACCHARIDOSIS IH
     Dosage: 0.59 MG/KG WEEKLY INTRAVENOUS
     Route: 042
     Dates: start: 20031218, end: 20031218

REACTIONS (4)
  - PYREXIA [None]
  - TACHYCARDIA [None]
  - TREMOR [None]
  - VOMITING [None]
